FAERS Safety Report 23108247 (Version 1)
Quarter: 2023Q4

REPORT INFORMATION
  Report Type: Report from Study
  Country: CO (occurrence: CO)
  Receive Date: 20231026
  Receipt Date: 20231026
  Transmission Date: 20240109
  Serious: Yes (Hospitalization, Other)
  Sender: FDA-Public Use
  Company Number: CO-ABBVIE-5465867

PATIENT
  Sex: Female
  Weight: 60 kg

DRUGS (1)
  1. ZEMPLAR [Suspect]
     Active Substance: PARICALCITOL
     Indication: Hyperparathyroidism secondary
     Dosage: FORM STRENGTH: 2 MICROGRAM
     Route: 065
     Dates: start: 20220411

REACTIONS (2)
  - Cataract [Not Recovered/Not Resolved]
  - Genital prolapse [Recovered/Resolved]

NARRATIVE: CASE EVENT DATE: 20220101
